FAERS Safety Report 20560066 (Version 1)
Quarter: 2022Q1

REPORT INFORMATION
  Report Type: Spontaneous
  Country: ES (occurrence: ES)
  Receive Date: 20220307
  Receipt Date: 20220307
  Transmission Date: 20220423
  Serious: Yes (Death, Other)
  Sender: FDA-Public Use
  Company Number: ES-AMAROX PHARMA GMBH-AMR2022ES00374

PATIENT
  Age: 67 Year
  Sex: Male

DRUGS (3)
  1. AMLODIPINE BESYLATE [Suspect]
     Active Substance: AMLODIPINE BESYLATE
     Dosage: UNK
  2. SIMVASTATIN [Concomitant]
     Active Substance: SIMVASTATIN
     Dosage: 1 DF
     Route: 065
  3. RIVAROXABAN [Concomitant]
     Active Substance: RIVAROXABAN
     Dosage: 1 DF
     Route: 065

REACTIONS (5)
  - Haemoptysis [Fatal]
  - Toxicity to various agents [Fatal]
  - Multiple organ dysfunction syndrome [Fatal]
  - Pulmonary alveolar haemorrhage [Unknown]
  - Respiratory disorder [Unknown]
